FAERS Safety Report 4371008-X (Version None)
Quarter: 2004Q2

REPORT INFORMATION
  Report Type: 
  Country: None (occurrence: None)
  Receive Date: 20040603
  Receipt Date: 20040603
  Transmission Date: 20050107
  Serious: Yes (Other)
  Sender: FDA-Public Use
  Company Number: None

PATIENT
  Age: 44 Year
  Sex: Male
  Weight: 63.5036 kg

DRUGS (5)
  1. BUPIVACAINE [Suspect]
     Indication: ARTHRALGIA
     Dosage: INTERSCALENE BLOCK X 1
     Route: 050
     Dates: start: 20040504
  2. BUPIVACAINE [Suspect]
  3. BUPIVACAINE [Suspect]
  4. VERSED [Concomitant]
  5. FENTANYL [Concomitant]

REACTIONS (2)
  - DEPRESSED LEVEL OF CONSCIOUSNESS [None]
  - MOVEMENT DISORDER [None]
